FAERS Safety Report 21236498 (Version 1)
Quarter: 2022Q3

REPORT INFORMATION
  Report Type: Spontaneous
  Country: US (occurrence: US)
  Receive Date: 20220822
  Receipt Date: 20220822
  Transmission Date: 20221027
  Serious: No
  Sender: FDA-Public Use
  Company Number: US-Accord-240561

PATIENT
  Age: 75 Year
  Sex: Female
  Weight: 79.8 kg

DRUGS (1)
  1. ANASTROZOLE [Suspect]
     Active Substance: ANASTROZOLE
     Indication: Breast cancer
     Dosage: 1 TABLET QD
     Route: 048
     Dates: start: 202106, end: 202107

REACTIONS (7)
  - Hot flush [Unknown]
  - Constipation [Unknown]
  - Breast pain [Unknown]
  - Chest pain [Unknown]
  - Chest discomfort [Unknown]
  - Nervousness [Unknown]
  - Arthralgia [Unknown]

NARRATIVE: CASE EVENT DATE: 20210701
